FAERS Safety Report 4919858-2 (Version None)
Quarter: 2006Q1

REPORT INFORMATION
  Report Type: 
  Country: None (occurrence: None)
  Receive Date: 20060216
  Receipt Date: 20060206
  Transmission Date: 20060701
  Serious: Yes (Other)
  Sender: FDA-Public Use
  Company Number: ID-2005-020853

PATIENT
  Age: 63 Year
  Sex: Male

DRUGS (3)
  1. ULTRAVIST 370 [Suspect]
     Indication: ARTERIOGRAM CORONARY
     Dosage: 75 ML, 1 DOSE, INTRAVENOUS
     Route: 042
     Dates: start: 20050711, end: 20050711
  2. GLUCOPHAGE [Concomitant]
  3. TENORMIN [Concomitant]

REACTIONS (6)
  - HEADACHE [None]
  - HYPERHIDROSIS [None]
  - HYPOTENSION [None]
  - LOSS OF CONSCIOUSNESS [None]
  - NAUSEA [None]
  - PALPITATIONS [None]
